FAERS Safety Report 16420986 (Version 1)
Quarter: 2019Q2

REPORT INFORMATION
  Report Type: Spontaneous
  Country: US (occurrence: US)
  Receive Date: 20190611
  Receipt Date: 20190611
  Transmission Date: 20190711
  Serious: Yes (Life-Threatening)
  Sender: FDA-Public Use
  Company Number: None

PATIENT
  Age: 69 Year
  Sex: Male
  Weight: 111.6 kg

DRUGS (2)
  1. XARELTO [Suspect]
     Active Substance: RIVAROXABAN
     Indication: ATRIAL FIBRILLATION
     Route: 048
  2. AMIODARONE [Suspect]
     Active Substance: AMIODARONE
     Route: 048

REACTIONS (2)
  - Subdural haematoma [None]
  - Drug interaction [None]

NARRATIVE: CASE EVENT DATE: 20131219
